FAERS Safety Report 14138367 (Version 4)
Quarter: 2018Q1

REPORT INFORMATION
  Report Type: Spontaneous
  Country: JP (occurrence: JP)
  Receive Date: 20171027
  Receipt Date: 20180209
  Transmission Date: 20180508
  Serious: Yes (Hospitalization)
  Sender: FDA-Public Use
  Company Number: JP-GILEAD-2017-0299899

PATIENT
  Age: 42 Year
  Sex: Female
  Weight: 49.99 kg

DRUGS (11)
  1. TRAZODONE [Concomitant]
     Active Substance: TRAZODONE HYDROCHLORIDE
     Indication: DEPRESSION
     Dosage: 1 DF, QD
     Route: 048
     Dates: start: 20170314
  2. VERAPAMIL                          /00014302/ [Concomitant]
     Active Substance: VERAPAMIL HYDROCHLORIDE
     Indication: TACHYARRHYTHMIA
     Dosage: 1 DF, BID
     Route: 048
     Dates: start: 20170314
  3. MAGMITT [Concomitant]
     Active Substance: MAGNESIUM OXIDE
     Indication: CONSTIPATION
     Dosage: 1 DF, QD
     Dates: start: 20170314
  4. HARVONI [Suspect]
     Active Substance: LEDIPASVIR\SOFOSBUVIR
     Indication: CHRONIC HEPATITIS C
     Dosage: 1 DF, QD
     Route: 048
     Dates: start: 20170921, end: 20171017
  5. REMERON [Concomitant]
     Active Substance: MIRTAZAPINE
     Indication: DEPRESSION
     Dosage: 1 DF, QD
     Route: 048
     Dates: start: 20170314
  6. PEROSPIRONE HYDROCHLORIDE [Concomitant]
     Active Substance: PEROSPIRONE HYDROCHLORIDE
     Indication: SCHIZOPHRENIA
     Dosage: 1 DF, TID
     Route: 048
     Dates: start: 20170314
  7. CARVEDILOL. [Concomitant]
     Active Substance: CARVEDILOL
     Indication: HYPERTENSION
     Dosage: 1 DF, QD
     Dates: start: 20170314
  8. LUNESTA [Concomitant]
     Active Substance: ESZOPICLONE
     Indication: INSOMNIA
     Dosage: 1 DF, QD
     Route: 048
     Dates: start: 20170314
  9. VALERIN                            /00228502/ [Concomitant]
     Active Substance: VALPROATE SODIUM
     Indication: MANIA
     Dosage: 200 MG, BID
     Dates: start: 20170720
  10. FLUNITRAZEPAM [Concomitant]
     Active Substance: FLUNITRAZEPAM
     Indication: INSOMNIA
     Dosage: 1 DF, QD
     Route: 048
     Dates: start: 20170314
  11. DIAZEPAM. [Concomitant]
     Active Substance: DIAZEPAM
     Indication: NEUROSIS
     Dosage: 1 DF, BID
     Route: 048
     Dates: start: 20170314

REACTIONS (6)
  - Bradyphrenia [Recovered/Resolved]
  - Abdominal discomfort [Recovered/Resolved]
  - Restlessness [Recovered/Resolved]
  - Mental status changes [Unknown]
  - Weight decreased [Recovered/Resolved]
  - Decreased appetite [Recovered/Resolved]

NARRATIVE: CASE EVENT DATE: 20170921
